FAERS Safety Report 7293091-4 (Version None)
Quarter: 2011Q1

REPORT INFORMATION
  Report Type: 
  Country: None (occurrence: None)
  Receive Date: 20110215
  Receipt Date: 20110126
  Transmission Date: 20110831
  Serious: No
  Sender: FDA-Public Use
  Company Number: US-BAYER-2011-013303

PATIENT
  Sex: Male
  Weight: 88 kg

DRUGS (3)
  1. ALEVE (CAPLET) [Suspect]
     Indication: ANALGESIC THERAPY
     Dosage: UNK
     Route: 048
     Dates: start: 20110101
  2. ADVIL LIQUI-GELS [Concomitant]
     Indication: ANALGESIC THERAPY
     Dosage: UNK
     Route: 048
     Dates: start: 20110101
  3. ALEVE (CAPLET) [Suspect]
     Dosage: UNK
     Dates: start: 20110101

REACTIONS (1)
  - DRUG SCREEN POSITIVE [None]
